FAERS Safety Report 13706396 (Version 9)
Quarter: 2018Q2

REPORT INFORMATION
  Report Type: Report from Study
  Country: CA (occurrence: CA)
  Receive Date: 20170630
  Receipt Date: 20180626
  Transmission Date: 20180711
  Serious: Yes (Hospitalization, Other)
  Sender: FDA-Public Use
  Company Number: CA-GLAXOSMITHKLINE-CA2017GSK101188

PATIENT
  Age: 70 Year
  Sex: Female

DRUGS (3)
  1. NUCALA [Suspect]
     Active Substance: MEPOLIZUMAB
     Indication: ASTHMA
     Dosage: 100 MG, Z (MONTHLY)
     Route: 042
     Dates: start: 20170707
  2. VENTOLIN [Suspect]
     Active Substance: ALBUTEROL SULFATE
     Indication: ASTHMA
     Dosage: UNK
  3. FLUTICASONE PROPIONATE+SALMETEROL XINAFOATE [Suspect]
     Active Substance: FLUTICASONE PROPIONATE\SALMETEROL XINAFOATE
     Indication: ASTHMA
     Dosage: UNK

REACTIONS (14)
  - Dyspnoea [Recovering/Resolving]
  - Abdominal pain upper [Unknown]
  - Therapeutic response shortened [Unknown]
  - Malaise [Recovering/Resolving]
  - Pneumonia [Unknown]
  - Multiple sclerosis [Unknown]
  - Respiration abnormal [Unknown]
  - Hypersensitivity [Recovering/Resolving]
  - Nausea [Unknown]
  - Memory impairment [Unknown]
  - Hallucination [Unknown]
  - Therapeutic response unexpected [Unknown]
  - Syncope [Unknown]
  - Drug effect incomplete [Unknown]

NARRATIVE: CASE EVENT DATE: 20170708
